FAERS Safety Report 8174036-1 (Version None)
Quarter: 2012Q1

REPORT INFORMATION
  Report Type: 
  Country: None (occurrence: None)
  Receive Date: 20120224
  Receipt Date: 20120208
  Transmission Date: 20120608
  Serious: Yes (Hospitalization)
  Sender: FDA-Public Use
  Company Number: DSA_55206_2012

PATIENT
  Sex: Female

DRUGS (17)
  1. ACENOCOUMAROL [Concomitant]
  2. VENLAFAXINE [Concomitant]
  3. CORDARONE [Suspect]
     Indication: NODAL ARRHYTHMIA
     Dosage: (600 MG QD ORAL)
     Route: 048
     Dates: start: 20110923, end: 20110925
  4. CORDARONE [Suspect]
     Indication: ATRIAL FIBRILLATION
     Dosage: (600 MG QD ORAL)
     Route: 048
     Dates: start: 20110923, end: 20110925
  5. CORDARONE [Suspect]
     Indication: ATRIAL FLUTTER
     Dosage: (600 MG QD ORAL)
     Route: 048
     Dates: start: 20110923, end: 20110925
  6. LOSARTAN POTASSIUM [Concomitant]
  7. ACETAMINOPHEN [Concomitant]
  8. MORPHINE [Concomitant]
  9. PANTOPRAZOLE [Concomitant]
  10. AMITRIPTYLINE HCL [Suspect]
     Indication: PRODUCT USED FOR UNKNOWN INDICATION
     Dosage: (DF ORAL)
     Route: 048
     Dates: start: 20110909, end: 20111001
  11. DILZEM (DILZEM - DILTIAZEM AMITRIPTYLINE HYDROCHLORIDE (NOT SPECIFIED) [Suspect]
     Indication: ATRIAL FIBRILLATION
     Dosage: (DF)
     Dates: start: 20110926, end: 20111001
  12. DILZEM (DILZEM - DILTIAZEM AMITRIPTYLINE HYDROCHLORIDE (NOT SPECIFIED) [Suspect]
     Indication: ATRIAL FLUTTER
     Dosage: (DF)
     Dates: start: 20110926, end: 20111001
  13. DILZEM (DILZEM - DILTIAZEM AMITRIPTYLINE HYDROCHLORIDE (NOT SPECIFIED) [Suspect]
     Indication: NODAL ARRHYTHMIA
     Dosage: (DF)
     Dates: start: 20110926, end: 20111001
  14. METOPROLOL TARTRATE [Concomitant]
  15. TORSEMIDE [Concomitant]
  16. ATORVASTATIN [Concomitant]
  17. BETNOVATE [Concomitant]

REACTIONS (3)
  - DERMATITIS EXFOLIATIVE [None]
  - MYCOSIS FUNGOIDES [None]
  - NEOPLASM PROGRESSION [None]
